FAERS Safety Report 9024231 (Version 5)
Quarter: 2013Q3

REPORT INFORMATION
  Report Type: Spontaneous
  Country: IT (occurrence: IT)
  Receive Date: 20130122
  Receipt Date: 20130711
  Transmission Date: 20140515
  Serious: Yes (Other)
  Sender: FDA-Public Use
  Company Number: IT-009507513-1301ITA008673

PATIENT
  Age: 67 Year
  Sex: Female

DRUGS (1)
  1. DRONAL 70 MG COMPRESSE [Suspect]
     Indication: OSTEOPOROSIS
     Dosage: 70 MG, QW
     Route: 048
     Dates: start: 19970101, end: 20120915

REACTIONS (1)
  - Osteonecrosis [Not Recovered/Not Resolved]
